FAERS Safety Report 25395496 (Version 1)
Quarter: 2025Q2

REPORT INFORMATION
  Report Type: Spontaneous
  Country: CN (occurrence: CN)
  Receive Date: 20250604
  Receipt Date: 20250604
  Transmission Date: 20250717
  Serious: Yes (Hospitalization, Disabling)
  Sender: PFIZER
  Company Number: CN-PFIZER INC-PV202500065672

PATIENT
  Age: 39 Year
  Sex: Female
  Weight: 45.05 kg

DRUGS (3)
  1. CYTARABINE [Suspect]
     Active Substance: CYTARABINE
     Indication: Acute myeloid leukaemia
     Dosage: 1.44 G, 1X/DAY
     Route: 041
     Dates: start: 20250501, end: 20250505
  2. CLADRIBINE [Suspect]
     Active Substance: CLADRIBINE
     Indication: Acute myeloid leukaemia
     Dosage: 7.2 MG, 1X/DAY
     Route: 041
     Dates: start: 20250501, end: 20250505
  3. JI SAI XIN [Concomitant]
     Indication: Acute myeloid leukaemia
     Dosage: 300 UG, 1X/DAY
     Route: 058
     Dates: start: 20250430, end: 20250505

REACTIONS (5)
  - Myelosuppression [Recovering/Resolving]
  - Abnormal uterine bleeding [Recovering/Resolving]
  - Pyrexia [Unknown]
  - Dizziness [Unknown]
  - Asthenia [Unknown]

NARRATIVE: CASE EVENT DATE: 20250503
